FAERS Safety Report 8273583-1 (Version None)
Quarter: 2012Q2

REPORT INFORMATION
  Report Type: 
  Country: None (occurrence: None)
  Receive Date: 20120411
  Receipt Date: 20120402
  Transmission Date: 20120825
  Serious: Yes (Other)
  Sender: FDA-Public Use
  Company Number: US-ASTRAZENECA-2012SE22051

PATIENT
  Age: 69 Year
  Sex: Female

DRUGS (5)
  1. LIPITOR [Concomitant]
  2. CRESTOR [Suspect]
     Route: 048
  3. CADUET [Concomitant]
  4. TAMOXIFEN CITRATE [Suspect]
     Route: 048
  5. NORVASC [Concomitant]

REACTIONS (7)
  - RECTOCELE [None]
  - BEDRIDDEN [None]
  - OVARIAN CANCER STAGE IV [None]
  - METASTASES TO LIVER [None]
  - URINARY TRACT INFECTION [None]
  - SOMNOLENCE [None]
  - METASTASES TO LYMPH NODES [None]
